FAERS Safety Report 23309116 (Version 1)
Quarter: 2023Q4

REPORT INFORMATION
  Report Type: Spontaneous
  Country: US (occurrence: US)
  Receive Date: 20231218
  Receipt Date: 20231218
  Transmission Date: 20240110
  Serious: Yes (Other)
  Sender: FDA-Public Use
  Company Number: US-GENMAB-2023-02417

PATIENT
  Sex: Female

DRUGS (1)
  1. EPKINLY [Suspect]
     Active Substance: EPCORITAMAB-BYSP
     Indication: Haematological malignancy
     Dosage: UNK
     Route: 058

REACTIONS (4)
  - Non-Hodgkin^s lymphoma [Unknown]
  - Infection [Unknown]
  - Adverse drug reaction [Unknown]
  - Positron emission tomogram abnormal [Unknown]
